FAERS Safety Report 24175425 (Version 1)
Quarter: 2024Q3

REPORT INFORMATION
  Report Type: Report from Study
  Country: US (occurrence: US)
  Receive Date: 20240805
  Receipt Date: 20240805
  Transmission Date: 20241017
  Serious: Yes (Disabling)
  Sender: GILEAD
  Company Number: US-GILEAD-2024-0682849

PATIENT
  Age: 76 Year
  Sex: Female

DRUGS (1)
  1. AZTREONAM LYSINE [Suspect]
     Active Substance: AZTREONAM LYSINE
     Indication: Chronic obstructive pulmonary disease
     Dosage: 75MG INHALE THE CONTENTS OF 1 VIAL THREE TIMES DAILY VIA NEBULIZER FOR 28 DAYS ON, 28 DAYS OFF
     Route: 055
     Dates: start: 20240614

REACTIONS (2)
  - Joint range of motion decreased [Not Recovered/Not Resolved]
  - Off label use [Not Recovered/Not Resolved]
